FAERS Safety Report 6437537-X (Version None)
Quarter: 2009Q4

REPORT INFORMATION
  Report Type: 
  Country: None (occurrence: None)
  Receive Date: 20091109
  Receipt Date: 20091026
  Transmission Date: 20100525
  Serious: Yes (Death, Hospitalization, Other)
  Sender: FDA-Public Use
  Company Number: 2009AP004309

PATIENT
  Age: 70 Year
  Sex: Female

DRUGS (4)
  1. LAMOTRIGINE [Suspect]
     Indication: SCHIZOPHRENIA
     Dosage: PO
     Route: 048
  2. CLOZARIL [Suspect]
     Indication: SCHIZOPHRENIA, PARANOID TYPE
     Dosage: 450 MG; PO; 450 MG; PO; QD
     Route: 048
     Dates: start: 19990716
  3. CLOZARIL [Suspect]
     Indication: SCHIZOPHRENIA, PARANOID TYPE
     Dosage: 450 MG; PO; 450 MG; PO; QD
     Route: 048
     Dates: start: 20010101
  4. CLOZAPINE [Concomitant]

REACTIONS (5)
  - ANTIPSYCHOTIC DRUG LEVEL INCREASED [None]
  - DRUG INTERACTION [None]
  - LOWER RESPIRATORY TRACT INFECTION [None]
  - LUNG CANCER METASTATIC [None]
  - TERMINAL STATE [None]
